FAERS Safety Report 12103051 (Version 1)
Quarter: 2016Q1

REPORT INFORMATION
  Report Type: Spontaneous
  Country: ES (occurrence: ES)
  Receive Date: 20160222
  Receipt Date: 20160222
  Transmission Date: 20160526
  Serious: Yes (Other)
  Sender: FDA-Public Use
  Company Number: ES-HOSPIRA-3169904

PATIENT
  Age: 81 Year
  Sex: Female

DRUGS (2)
  1. ACENOCOUMAROL [Suspect]
     Active Substance: ACENOCOUMAROL
     Indication: THROMBOSIS PROPHYLAXIS
  2. LEVOFLOXACIN. [Suspect]
     Active Substance: LEVOFLOXACIN
     Indication: PNEUMONIA
     Route: 042

REACTIONS (2)
  - International normalised ratio increased [Recovered/Resolved]
  - Drug interaction [Recovered/Resolved]
